FAERS Safety Report 4820332-2 (Version None)
Quarter: 2005Q4

REPORT INFORMATION
  Report Type: 
  Country: None (occurrence: None)
  Receive Date: 20051014
  Receipt Date: 20050716
  Transmission Date: 20060501
  Serious: No
  Sender: FDA-Public Use
  Company Number: 2005SP002154

PATIENT
  Age: 82 Year
  Sex: Female
  Weight: 47.6277 kg

DRUGS (10)
  1. LUNESTA [Suspect]
     Indication: INSOMNIA
     Dosage: 3 MG;HS;ORAL
     Route: 048
     Dates: start: 20050713
  2. WARFARIN SODIUM [Concomitant]
  3. ALTACE [Concomitant]
  4. COZAAR [Concomitant]
  5. ATENOLOL [Concomitant]
  6. ZETIA [Concomitant]
  7. ATORVASTATIN CALCIUM [Concomitant]
  8. FEMARA [Concomitant]
  9. MULTI-VITAMINS [Concomitant]
  10. FOSAMAX [Concomitant]

REACTIONS (4)
  - DRUG INEFFECTIVE [None]
  - DRY MOUTH [None]
  - FREQUENT BOWEL MOVEMENTS [None]
  - INSOMNIA [None]
